FAERS Safety Report 7405825-6 (Version None)
Quarter: 2011Q2

REPORT INFORMATION
  Report Type: 
  Country: None (occurrence: None)
  Receive Date: 20110411
  Receipt Date: 20110329
  Transmission Date: 20111010
  Serious: Yes (Hospitalization)
  Sender: FDA-Public Use
  Company Number: US-ACTELION-A-NJ2010-40897

PATIENT

DRUGS (2)
  1. REVATIO [Concomitant]
  2. TRACLEER [Suspect]
     Indication: PULMONARY ARTERIAL HYPERTENSION
     Dosage: UNK
     Route: 048
     Dates: start: 20080530

REACTIONS (4)
  - ABDOMINAL DISCOMFORT [None]
  - BILIARY TRACT OPERATION [None]
  - BLOOD COUNT ABNORMAL [None]
  - SMALL INTESTINAL HAEMORRHAGE [None]
